FAERS Safety Report 7880162-4 (Version None)
Quarter: 2011Q4

REPORT INFORMATION
  Report Type: 
  Country: None (occurrence: None)
  Receive Date: 20111101
  Receipt Date: 20111028
  Transmission Date: 20120403
  Serious: No
  Sender: FDA-Public Use
  Company Number: US-PFIZER INC-2011264576

PATIENT
  Sex: Female
  Weight: 54.4 kg

DRUGS (2)
  1. EFFEXOR XR [Suspect]
     Dosage: 150 MG, DAILY
     Route: 048
  2. EFFEXOR XR [Suspect]
     Dosage: 150 MG, DAILY
     Route: 048
     Dates: start: 20111001

REACTIONS (2)
  - ANXIETY [None]
  - TREMOR [None]
